FAERS Safety Report 10565020 (Version 2)
Quarter: 2014Q4

REPORT INFORMATION
  Report Type: Spontaneous
  Country: US (occurrence: US)
  Receive Date: 20141105
  Receipt Date: 20141120
  Transmission Date: 20150529
  Serious: Yes (Death, Life-Threatening, Other)
  Sender: FDA-Public Use
  Company Number: US-009507513-1410USA014755

PATIENT
  Sex: Male

DRUGS (2)
  1. KEYTRUDA [Suspect]
     Active Substance: PEMBROLIZUMAB
     Indication: DISEASE PROGRESSION
  2. KEYTRUDA [Suspect]
     Active Substance: PEMBROLIZUMAB
     Indication: METASTATIC MALIGNANT MELANOMA
     Dosage: 2 MG/KG, Q3W, INFUSION OVER 30 MINUTES, DRUG STARTED WITHIN THE LAST 6-WEEKS
     Route: 042
     Dates: start: 201409, end: 2014

REACTIONS (5)
  - Death [Fatal]
  - Central nervous system haemorrhage [Unknown]
  - Metastases to central nervous system [Unknown]
  - Unresponsive to stimuli [Unknown]
  - Lymphoedema [Unknown]

NARRATIVE: CASE EVENT DATE: 2014
